FAERS Safety Report 8689957 (Version 3)
Quarter: 2013Q3

REPORT INFORMATION
  Report Type: Spontaneous
  Country: US (occurrence: US)
  Receive Date: 20120727
  Receipt Date: 20130823
  Transmission Date: 20140515
  Serious: No
  Sender: FDA-Public Use
  Company Number: US-ASTRAZENECA-2012SE16863

PATIENT
  Age: 38 Year
  Sex: Male

DRUGS (35)
  1. SEROQUEL [Suspect]
     Indication: PSYCHOTIC BEHAVIOUR
     Dosage: AT NIGHT
     Route: 048
     Dates: start: 2005
  2. SEROQUEL [Suspect]
     Indication: PARANOIA
     Dosage: AT NIGHT
     Route: 048
     Dates: start: 2005
  3. SEROQUEL [Suspect]
     Indication: DEPENDENCE
     Dosage: AT NIGHT
     Route: 048
     Dates: start: 2005
  4. SEROQUEL [Suspect]
     Indication: SCHIZOAFFECTIVE DISORDER
     Dosage: AT NIGHT
     Route: 048
     Dates: start: 2005
  5. SEROQUEL [Suspect]
     Indication: ANXIETY
     Dosage: AT NIGHT
     Route: 048
     Dates: start: 2005
  6. SEROQUEL [Suspect]
     Indication: AFFECTIVE DISORDER
     Dosage: AT NIGHT
     Route: 048
     Dates: start: 2005
  7. SEROQUEL [Suspect]
     Indication: PANIC ATTACK
     Dosage: AT NIGHT
     Route: 048
     Dates: start: 2005
  8. SEROQUEL [Suspect]
     Indication: INSOMNIA
     Dosage: AT NIGHT
     Route: 048
     Dates: start: 2005
  9. SEROQUEL [Suspect]
     Indication: BIPOLAR DISORDER
     Dosage: AT NIGHT
     Route: 048
     Dates: start: 2005
  10. SEROQUEL [Suspect]
     Indication: IDEAS OF REFERENCE
     Dosage: AT NIGHT
     Route: 048
     Dates: start: 2005
  11. SEROQUEL [Suspect]
     Indication: DEREALISATION
     Dosage: AT NIGHT
     Route: 048
     Dates: start: 2005
  12. SEROQUEL [Suspect]
     Indication: PSYCHOTIC BEHAVIOUR
     Dosage: 500 TO 600 MG AT NIGHT
     Route: 048
     Dates: start: 2008
  13. SEROQUEL [Suspect]
     Indication: PARANOIA
     Dosage: 500 TO 600 MG AT NIGHT
     Route: 048
     Dates: start: 2008
  14. SEROQUEL [Suspect]
     Indication: DEPENDENCE
     Dosage: 500 TO 600 MG AT NIGHT
     Route: 048
     Dates: start: 2008
  15. SEROQUEL [Suspect]
     Indication: SCHIZOAFFECTIVE DISORDER
     Dosage: 500 TO 600 MG AT NIGHT
     Route: 048
     Dates: start: 2008
  16. SEROQUEL [Suspect]
     Indication: ANXIETY
     Dosage: 500 TO 600 MG AT NIGHT
     Route: 048
     Dates: start: 2008
  17. SEROQUEL [Suspect]
     Indication: AFFECTIVE DISORDER
     Dosage: 500 TO 600 MG AT NIGHT
     Route: 048
     Dates: start: 2008
  18. SEROQUEL [Suspect]
     Indication: PANIC ATTACK
     Dosage: 500 TO 600 MG AT NIGHT
     Route: 048
     Dates: start: 2008
  19. SEROQUEL [Suspect]
     Indication: INSOMNIA
     Dosage: 500 TO 600 MG AT NIGHT
     Route: 048
     Dates: start: 2008
  20. SEROQUEL [Suspect]
     Indication: BIPOLAR DISORDER
     Dosage: 500 TO 600 MG AT NIGHT
     Route: 048
     Dates: start: 2008
  21. SEROQUEL [Suspect]
     Indication: IDEAS OF REFERENCE
     Dosage: 500 TO 600 MG AT NIGHT
     Route: 048
     Dates: start: 2008
  22. SEROQUEL [Suspect]
     Indication: DEREALISATION
     Dosage: 500 TO 600 MG AT NIGHT
     Route: 048
     Dates: start: 2008
  23. SEROQUEL [Suspect]
     Indication: PSYCHOTIC BEHAVIOUR
     Route: 048
     Dates: start: 2008
  24. SEROQUEL [Suspect]
     Indication: PARANOIA
     Route: 048
     Dates: start: 2008
  25. SEROQUEL [Suspect]
     Indication: DEPENDENCE
     Route: 048
     Dates: start: 2008
  26. SEROQUEL [Suspect]
     Indication: SCHIZOAFFECTIVE DISORDER
     Route: 048
     Dates: start: 2008
  27. SEROQUEL [Suspect]
     Indication: ANXIETY
     Route: 048
     Dates: start: 2008
  28. SEROQUEL [Suspect]
     Indication: AFFECTIVE DISORDER
     Route: 048
     Dates: start: 2008
  29. SEROQUEL [Suspect]
     Indication: PANIC ATTACK
     Route: 048
     Dates: start: 2008
  30. SEROQUEL [Suspect]
     Indication: INSOMNIA
     Route: 048
     Dates: start: 2008
  31. SEROQUEL [Suspect]
     Indication: BIPOLAR DISORDER
     Route: 048
     Dates: start: 2008
  32. SEROQUEL [Suspect]
     Indication: IDEAS OF REFERENCE
     Route: 048
     Dates: start: 2008
  33. SEROQUEL [Suspect]
     Indication: DEREALISATION
     Route: 048
     Dates: start: 2008
  34. CLONAZEPAM [Concomitant]
     Indication: ANXIETY
     Dosage: 1-2 MG PER DAY
  35. TRAZADONE [Concomitant]
     Indication: SLEEP DISORDER
     Dates: start: 2012

REACTIONS (18)
  - Hypertension [Unknown]
  - Nausea [Unknown]
  - Chest pain [Unknown]
  - Muscle tightness [Unknown]
  - Pruritus [Unknown]
  - Panic attack [Unknown]
  - Insomnia [Unknown]
  - Substance abuse [Unknown]
  - Anxiety [Unknown]
  - Blood cholesterol increased [Unknown]
  - Dyspnoea [Unknown]
  - Vomiting [Unknown]
  - Weight increased [Unknown]
  - Hypersensitivity [Unknown]
  - Drug intolerance [Unknown]
  - Intentional drug misuse [Unknown]
  - Off label use [Unknown]
  - Drug ineffective for unapproved indication [Unknown]
